FAERS Safety Report 5091169-7 (Version None)
Quarter: 2006Q3

REPORT INFORMATION
  Report Type: 
  Country: None (occurrence: None)
  Receive Date: 20060829
  Receipt Date: 20060630
  Transmission Date: 20061208
  Serious: Yes (Hospitalization, Other)
  Sender: FDA-Public Use
  Company Number: PHEH2006US08522

PATIENT
  Age: 73 Year
  Sex: Male
  Weight: 51.247 kg

DRUGS (8)
  1. EXJADE [Suspect]
     Indication: BLOOD IRON INCREASED
     Dosage: 1250 MG, QD
     Route: 048
     Dates: start: 20060227
  2. EXJADE [Suspect]
     Dosage: 2000 MG, QD
     Route: 048
     Dates: end: 20060624
  3. AGRYLIN [Concomitant]
     Dosage: 0.5 MG, UNK
  4. VIDAZA [Concomitant]
  5. PROTONIX [Concomitant]
  6. COLACE [Concomitant]
  7. LASIX [Concomitant]
  8. K-DUR 10 [Concomitant]

REACTIONS (4)
  - DIARRHOEA [None]
  - ORCHIDECTOMY [None]
  - TRANSURETHRAL PROSTATECTOMY [None]
  - URINARY TRACT INFECTION [None]
